FAERS Safety Report 8275247-7 (Version None)
Quarter: 2012Q2

REPORT INFORMATION
  Report Type: 
  Country: None (occurrence: None)
  Receive Date: 20120411
  Receipt Date: 20120402
  Transmission Date: 20120825
  Serious: Yes (Hospitalization)
  Sender: FDA-Public Use
  Company Number: FR-ROCHE-1028071

PATIENT
  Sex: Male

DRUGS (3)
  1. MABTHERA [Suspect]
     Indication: B-CELL LYMPHOMA RECURRENT
     Route: 042
     Dates: start: 20110124, end: 20111018
  2. FLUDARABINE PHOSPHATE [Concomitant]
     Dates: start: 20110124, end: 20110421
  3. NOVANTRONE [Concomitant]
     Dates: start: 20110124, end: 20110421

REACTIONS (1)
  - MENINGITIS ASEPTIC [None]
